FAERS Safety Report 8510762-X (Version None)
Quarter: 2012Q3

REPORT INFORMATION
  Report Type: 
  Country: None (occurrence: None)
  Receive Date: 20120716
  Receipt Date: 20120710
  Transmission Date: 20120928
  Serious: No
  Sender: FDA-Public Use
  Company Number: US-PFIZER INC-2012090020

PATIENT
  Sex: Male
  Weight: 13.605 kg

DRUGS (4)
  1. GENOTROPIN [Suspect]
     Indication: GROWTH RETARDATION
     Dosage: 0.6 MG, 1X/DAY
     Route: 058
     Dates: start: 20120321
  2. GENOTROPIN [Suspect]
     Dosage: UNK
     Route: 058
     Dates: start: 20120101
  3. MELATONIN [Concomitant]
     Dosage: UNK
  4. TENEX [Concomitant]
     Indication: ATTENTION DEFICIT/HYPERACTIVITY DISORDER
     Dosage: UNK

REACTIONS (6)
  - MIDDLE INSOMNIA [None]
  - FATIGUE [None]
  - POOR QUALITY DRUG ADMINISTERED [None]
  - CRYING [None]
  - PRODUCT QUALITY ISSUE [None]
  - HEADACHE [None]
